FAERS Safety Report 7244336-8 (Version None)
Quarter: 2011Q1

REPORT INFORMATION
  Report Type: 
  Country: None (occurrence: None)
  Receive Date: 20110118
  Receipt Date: 20110103
  Transmission Date: 20110831
  Serious: Yes (Life-Threatening, Hospitalization)
  Sender: FDA-Public Use
  Company Number: 2009CZ0047

PATIENT
  Age: 2 Year
  Sex: Male

DRUGS (1)
  1. ORFADIN [Suspect]
     Indication: TYROSINAEMIA
     Dosage: 1 MG/KG ORAL
     Route: 048
     Dates: start: 20070305

REACTIONS (6)
  - HEPATIC ADENOMA [None]
  - HEPATIC NEOPLASM MALIGNANT [None]
  - DRUG INEFFECTIVE [None]
  - LIVER TRANSPLANT [None]
  - NEPHROPATHY [None]
  - AMINO ACID LEVEL INCREASED [None]
